FAERS Safety Report 9671965 (Version 2)
Quarter: 2013Q4

REPORT INFORMATION
  Report Type: Spontaneous
  Country: US (occurrence: US)
  Receive Date: 20131106
  Receipt Date: 20131127
  Transmission Date: 20140711
  Serious: Yes (Life-Threatening, Other)
  Sender: FDA-Public Use
  Company Number: CHPA2013US016626

PATIENT
  Age: 44 Year
  Sex: Female

DRUGS (4)
  1. CONTROL PLP [Suspect]
     Indication: SMOKING CESSATION THERAPY
     Dosage: 14 MG, UNK
     Route: 062
     Dates: start: 20131030
  2. CONTROL PLP [Suspect]
     Dosage: 21 MG, UNK
     Route: 062
     Dates: start: 20131021, end: 20131028
  3. PRAVASTATIN [Concomitant]
     Dosage: UNK
  4. PLAVIX [Concomitant]
     Dosage: UNK

REACTIONS (11)
  - Malaise [Recovered/Resolved]
  - Urticaria [Recovered/Resolved]
  - Scar [Unknown]
  - Pyrexia [Recovered/Resolved]
  - Rash papular [Not Recovered/Not Resolved]
  - Gait disturbance [Recovered/Resolved]
  - Rash generalised [Unknown]
  - Back pain [Recovered/Resolved]
  - Diarrhoea [Unknown]
  - Headache [Recovered/Resolved]
  - Inappropriate schedule of drug administration [Unknown]
